FAERS Safety Report 10931278 (Version 3)
Quarter: 2015Q2

REPORT INFORMATION
  Report Type: Spontaneous
  Country: US (occurrence: None)
  Receive Date: 20150316
  Receipt Date: 20150417
  Transmission Date: 20150821
  Serious: Yes (Other)
  Sender: FDA-Public Use
  Company Number: US-003170

PATIENT
  Age: 12 Year
  Sex: Female

DRUGS (6)
  1. MILTEFOSINE (MILTEFOSINE) CAPSULE, 50MG [Suspect]
     Active Substance: MILTEFOSINE
     Indication: MENINGOENCEPHALITIS AMOEBIC
     Dates: start: 201307, end: 2013
  2. RIFAMPIN. [Suspect]
     Active Substance: RIFAMPIN
     Indication: MENINGOENCEPHALITIS AMOEBIC
     Dates: start: 201307, end: 2013
  3. AMPHOTERICIN B. [Concomitant]
     Active Substance: AMPHOTERICIN B
  4. AZITHROMYCIN [Suspect]
     Active Substance: AZITHROMYCIN ANHYDROUS
     Indication: MENINGOENCEPHALITIS AMOEBIC
     Dates: start: 201307, end: 2013
  5. FLUCONAZOLE (FLUCONAZOLE) [Suspect]
     Active Substance: FLUCONAZOLE
     Indication: MENINGOENCEPHALITIS AMOEBIC
     Dates: start: 201307, end: 2013
  6. DEXAMETHASONE. [Concomitant]
     Active Substance: DEXAMETHASONE

REACTIONS (9)
  - Pancreatitis [None]
  - Off label use [None]
  - VIth nerve paralysis [None]
  - Nausea [None]
  - Abdominal pain upper [None]
  - Therapeutic response unexpected [None]
  - Vomiting [None]
  - Intracranial pressure increased [None]
  - Brain oedema [None]
